FAERS Safety Report 5075567-3 (Version None)
Quarter: 2006Q3

REPORT INFORMATION
  Report Type: 
  Country: None (occurrence: None)
  Receive Date: 20060809
  Receipt Date: 20060728
  Transmission Date: 20061208
  Serious: Yes (Death, Other)
  Sender: FDA-Public Use
  Company Number: JP-BRISTOL-MYERS SQUIBB COMPANY-13460126

PATIENT
  Age: 52 Year
  Sex: Male

DRUGS (3)
  1. TAXOL [Suspect]
     Indication: GASTRIC CANCER
  2. RANDA [Concomitant]
     Indication: GASTRIC CANCER
     Route: 042
  3. TS-1 [Concomitant]
     Indication: GASTRIC CANCER

REACTIONS (4)
  - DISSEMINATED INTRAVASCULAR COAGULATION [None]
  - MALIGNANT NEOPLASM PROGRESSION [None]
  - PSEUDOMONAS INFECTION [None]
  - SKIN NECROSIS [None]
